FAERS Safety Report 10329914 (Version 1)
Quarter: 2014Q3

REPORT INFORMATION
  Report Type: Spontaneous
  Country: US (occurrence: US)
  Receive Date: 20140721
  Receipt Date: 20140721
  Transmission Date: 20150326
  Serious: Yes (Hospitalization)
  Sender: FDA-Public Use
  Company Number: US-GLAXOSMITHKLINE-A1081417A

PATIENT
  Age: 66 Year
  Sex: Female

DRUGS (1)
  1. ADVAIR HFA [Suspect]
     Active Substance: FLUTICASONE PROPIONATE\SALMETEROL XINAFOATE
     Indication: ASTHMA
     Dosage: 1PUFF TWICE PER DAY
     Route: 055

REACTIONS (5)
  - Fall [Unknown]
  - Umbilical hernia [Unknown]
  - Ankle operation [Unknown]
  - Asthenia [Unknown]
  - Ankle fracture [Unknown]

NARRATIVE: CASE EVENT DATE: 2013
